FAERS Safety Report 15386476 (Version 1)
Quarter: 2018Q3

REPORT INFORMATION
  Report Type: Spontaneous
  Country: BR (occurrence: BR)
  Receive Date: 20180914
  Receipt Date: 20180914
  Transmission Date: 20181010
  Serious: Yes (Death, Other)
  Sender: FDA-Public Use
  Company Number: BR-SAKK-2018SA254813AA

PATIENT
  Sex: Male

DRUGS (1)
  1. ALDURAZYME [Suspect]
     Active Substance: LARONIDASE
     Route: 041

REACTIONS (3)
  - Heart valve replacement [Unknown]
  - Cardiac arrest [Fatal]
  - Cardiac operation [Unknown]

NARRATIVE: CASE EVENT DATE: 201602
